FAERS Safety Report 26091643 (Version 1)
Quarter: 2025Q4

REPORT INFORMATION
  Report Type: Spontaneous
  Country: US (occurrence: US)
  Receive Date: 20251126
  Receipt Date: 20251126
  Transmission Date: 20260118
  Serious: Yes (Other)
  Sender: BridgeBio Pharma
  Company Number: US-BRIDGEBIO-25US002227

PATIENT

DRUGS (1)
  1. ATTRUBY [Suspect]
     Active Substance: ACORAMIDIS HYDROCHLORIDE
     Indication: Cardiac amyloidosis
     Dosage: 2 DOSAGE FORM, BID
     Route: 065

REACTIONS (5)
  - Syncope [Unknown]
  - Diarrhoea [Unknown]
  - Chills [Unknown]
  - Oxygen saturation decreased [Unknown]
  - Dyspnoea [Unknown]
